FAERS Safety Report 6350286-1 (Version None)
Quarter: 2009Q3

REPORT INFORMATION
  Report Type: 
  Country: None (occurrence: None)
  Receive Date: 20090911
  Receipt Date: 20090622
  Transmission Date: 20100115
  Serious: No
  Sender: FDA-Public Use
  Company Number: US-ABBOTT-06P-163-0354352-00

PATIENT
  Sex: Male
  Weight: 96.4 kg

DRUGS (1)
  1. HUMIRA [Suspect]
     Indication: PSORIATIC ARTHROPATHY
     Route: 058
     Dates: start: 20061124

REACTIONS (2)
  - ACCIDENTAL EXPOSURE [None]
  - DRUG DELIVERY SYSTEM MALFUNCTION [None]
